FAERS Safety Report 21913444 (Version 1)
Quarter: 2023Q1

REPORT INFORMATION
  Report Type: Spontaneous
  Country: US (occurrence: US)
  Receive Date: 20230125
  Receipt Date: 20230125
  Transmission Date: 20230417
  Serious: No
  Sender: FDA-Public Use
  Company Number: US-ALLERGAN-2213886US

PATIENT
  Sex: Female

DRUGS (1)
  1. BOTOX [Suspect]
     Active Substance: ONABOTULINUMTOXINA
     Indication: Product used for unknown indication
     Dosage: UNK, SINGLE
     Dates: start: 20220407, end: 20220407

REACTIONS (3)
  - Neuropathy peripheral [Not Recovered/Not Resolved]
  - Condition aggravated [Not Recovered/Not Resolved]
  - Back pain [Not Recovered/Not Resolved]
